FAERS Safety Report 8022401-5 (Version None)
Quarter: 2012Q1

REPORT INFORMATION
  Report Type: 
  Country: None (occurrence: None)
  Receive Date: 20120104
  Receipt Date: 20110204
  Transmission Date: 20120608
  Serious: No
  Sender: FDA-Public Use
  Company Number: US-MYLANLABS-2011S1002548

PATIENT
  Age: 56 Year
  Sex: Female

DRUGS (5)
  1. SAPHRIS [Suspect]
     Indication: AFFECTIVE DISORDER
     Route: 048
     Dates: start: 20110204
  2. OXYCODONE HCL [Concomitant]
     Indication: PAIN
     Route: 048
  3. GABAPENTIN [Suspect]
     Indication: NEUROPATHY PERIPHERAL
     Route: 048
     Dates: start: 20110129
  4. ZONISAMIDE [Suspect]
     Indication: PAIN
     Route: 048
     Dates: start: 20110203
  5. LANTUS [Concomitant]
     Indication: DIABETES MELLITUS
     Route: 058

REACTIONS (5)
  - BALANCE DISORDER [None]
  - COORDINATION ABNORMAL [None]
  - DISTURBANCE IN ATTENTION [None]
  - BLOOD GLUCOSE FLUCTUATION [None]
  - FATIGUE [None]
